FAERS Safety Report 25219371 (Version 3)
Quarter: 2025Q2

REPORT INFORMATION
  Report Type: Report from Study
  Country: BR (occurrence: BR)
  Receive Date: 20250421
  Receipt Date: 20250509
  Transmission Date: 20250716
  Serious: Yes (Hospitalization, Other)
  Sender: TAKEDA
  Company Number: BR-TAKEDA-2025TUS037164

PATIENT
  Age: 54 Year
  Sex: Male
  Weight: 62.5 kg

DRUGS (5)
  1. MESALAMINE [Suspect]
     Active Substance: MESALAMINE
     Indication: Colitis
     Dosage: 1600 MILLIGRAM, QD
     Dates: start: 200709
  2. MESALAMINE [Suspect]
     Active Substance: MESALAMINE
     Indication: Colitis ulcerative
     Dosage: 800 MILLIGRAM, Q8HR
     Dates: start: 2007
  3. MESALAMINE [Suspect]
     Active Substance: MESALAMINE
     Dosage: 400 MILLIGRAM, Q12H
     Dates: start: 2007
  4. MESALAMINE [Suspect]
     Active Substance: MESALAMINE
     Indication: Colitis ulcerative
     Dosage: 250 MILLIGRAM, QD
  5. PREDNISONE [Concomitant]
     Active Substance: PREDNISONE

REACTIONS (11)
  - Haemorrhage [Unknown]
  - Haematochezia [Unknown]
  - Colitis [Unknown]
  - Colitis ulcerative [Unknown]
  - Drug ineffective [Unknown]
  - Weight decreased [Not Recovered/Not Resolved]
  - Skin odour abnormal [Not Recovered/Not Resolved]
  - Diverticulum intestinal [Unknown]
  - Abnormal faeces [Unknown]
  - Flatulence [Unknown]
  - Pyrexia [Unknown]

NARRATIVE: CASE EVENT DATE: 20250401
